FAERS Safety Report 9861613 (Version 1)
Quarter: 2014Q1

REPORT INFORMATION
  Report Type: Spontaneous
  Country: US (occurrence: US)
  Receive Date: 20140203
  Receipt Date: 20140203
  Transmission Date: 20141002
  Serious: Yes (Other)
  Sender: FDA-Public Use
  Company Number: US-BIOGENIDEC-2014BI008884

PATIENT
  Sex: Female

DRUGS (1)
  1. AVONEX [Suspect]
     Indication: MULTIPLE SCLEROSIS
     Route: 030
     Dates: start: 19981001

REACTIONS (4)
  - Thrombosis [Recovered/Resolved]
  - Fall [Recovered/Resolved]
  - Tooth fracture [Recovered/Resolved]
  - Lip injury [Recovered/Resolved]
